FAERS Safety Report 19822886 (Version 1)
Quarter: 2021Q3

REPORT INFORMATION
  Report Type: Spontaneous
  Country: FR (occurrence: FR)
  Receive Date: 20210913
  Receipt Date: 20210913
  Transmission Date: 20211014
  Serious: Yes (Hospitalization, Other)
  Sender: FDA-Public Use
  Company Number: FR-MYLANLABS-2021M1059931

PATIENT
  Age: 88 Year

DRUGS (9)
  1. ELIQUIS [Concomitant]
     Active Substance: APIXABAN
     Dosage: 2.5
  2. BISOCE [Concomitant]
     Active Substance: BISOPROLOL
     Dosage: 1.25
  3. RISPERIDONE. [Concomitant]
     Active Substance: RISPERIDONE
     Dosage: 0.5
  4. MIANSERINE                         /00390601/ [Concomitant]
     Active Substance: MIANSERIN
     Dosage: 30
  5. TIAPRIDAL [Concomitant]
     Active Substance: TIAPRIDE HYDROCHLORIDE
     Dosage: UNK, PRN
  6. LAMOTRIGINE. [Suspect]
     Active Substance: LAMOTRIGINE
     Indication: EPILEPSY
     Dosage: UNK
  7. DEPAKINE                           /00228502/ [Suspect]
     Active Substance: VALPROATE SODIUM
     Indication: EPILEPSY
     Dosage: 0.5 DOSAGE FORM,BID Q12H(? MORNING AND ? EVENING)
  8. TAMSULOSIN [Concomitant]
     Active Substance: TAMSULOSIN
     Dosage: UNK
  9. DUPHALAC [Concomitant]
     Active Substance: LACTULOSE
     Dosage: UNK

REACTIONS (4)
  - Behaviour disorder [Unknown]
  - Hepatic cytolysis [Unknown]
  - Withdrawal syndrome [Unknown]
  - Drug ineffective [Unknown]
